FAERS Safety Report 4627050-4 (Version None)
Quarter: 2005Q2

REPORT INFORMATION
  Report Type: 
  Country: None (occurrence: None)
  Receive Date: 20050401
  Receipt Date: 20050401
  Transmission Date: 20051028
  Serious: Yes (Life-Threatening)
  Sender: FDA-Public Use
  Company Number: None

PATIENT
  Sex: Female
  Weight: 91 kg

DRUGS (2)
  1. DOXORUBICIN HCL [Suspect]
     Indication: BREAST CANCER
     Dosage: 50 MG IVP
     Route: 042
     Dates: start: 20050323
  2. ALOXI [Suspect]

REACTIONS (4)
  - FEELING ABNORMAL [None]
  - FLUSHING [None]
  - SWELLING FACE [None]
  - URTICARIA [None]
